FAERS Safety Report 11317533 (Version 1)
Quarter: 2015Q3

REPORT INFORMATION
  Report Type: Report from Study
  Country: NL (occurrence: NL)
  Receive Date: 20150728
  Receipt Date: 20150728
  Transmission Date: 20151125
  Serious: Yes (Hospitalization)
  Sender: FDA-Public Use
  Company Number: NL-ABBVIE-15P-114-1431158-00

PATIENT
  Sex: Male

DRUGS (1)
  1. DUODOPA [Suspect]
     Active Substance: CARBIDOPA\LEVODOPA
     Indication: PARKINSON^S DISEASE
     Dosage: INTESTINAL GEL 20/5 MG/ML  CONTINOUS ROUTE INTESTINAL
     Route: 050
     Dates: start: 201404

REACTIONS (4)
  - Weight decreased [Unknown]
  - Pain [Unknown]
  - Stoma site extravasation [Unknown]
  - Pyrexia [Unknown]
